FAERS Safety Report 14307101 (Version 1)
Quarter: 2017Q4

REPORT INFORMATION
  Report Type: Spontaneous
  Country: US (occurrence: US)
  Receive Date: 20171220
  Receipt Date: 20171220
  Transmission Date: 20180321
  Serious: No
  Sender: FDA-Public Use
  Company Number: US-TEVA-824387USA

PATIENT
  Sex: Female

DRUGS (1)
  1. CLOBETASOL [Suspect]
     Active Substance: CLOBETASOL
     Route: 065

REACTIONS (4)
  - Product storage error [Unknown]
  - Product quality issue [Unknown]
  - Product expiration date issue [Unknown]
  - Drug ineffective [Unknown]
